FAERS Safety Report 7067440-6 (Version None)
Quarter: 2010Q4

REPORT INFORMATION
  Report Type: 
  Country: None (occurrence: None)
  Receive Date: 20101026
  Receipt Date: 20101026
  Transmission Date: 20110411
  Serious: No
  Sender: FDA-Public Use
  Company Number: None

PATIENT
  Age: 67 Year
  Sex: Female
  Weight: 77.1115 kg

DRUGS (1)
  1. ADVAIR DISKUS 100/50 [Suspect]
     Indication: ASTHMA
     Dosage: 1 PUFF TWICE DAILY PO
     Route: 048
     Dates: start: 20060403, end: 20080401

REACTIONS (2)
  - MUSCLE SPASMS [None]
  - SLEEP DISORDER [None]
